FAERS Safety Report 4753595-2 (Version None)
Quarter: 2005Q3

REPORT INFORMATION
  Report Type: 
  Country: None (occurrence: None)
  Receive Date: 20050826
  Receipt Date: 20040701
  Transmission Date: 20060218
  Serious: No
  Sender: FDA-Public Use
  Company Number: US-GLAXOSMITHKLINE-A0516752A

PATIENT
  Sex: Male

DRUGS (2)
  1. BECONASE [Suspect]
     Dosage: 2SPR PER DAY
     Route: 045
     Dates: start: 20040501, end: 20040601
  2. EYE DROPS [Concomitant]

REACTIONS (5)
  - BURNING SENSATION [None]
  - DRUG INEFFECTIVE [None]
  - DYSGEUSIA [None]
  - IRRITABILITY [None]
  - PHARMACEUTICAL PRODUCT COMPLAINT [None]
